FAERS Safety Report 7428820-X (Version None)
Quarter: 2011Q2

REPORT INFORMATION
  Report Type: 
  Country: None (occurrence: None)
  Receive Date: 20110421
  Receipt Date: 20110419
  Transmission Date: 20111010
  Serious: Yes (Death)
  Sender: FDA-Public Use
  Company Number: JP-PFIZER INC-2010173939

PATIENT
  Age: 4 Year
  Sex: Male
  Weight: 6.3 kg

DRUGS (13)
  1. SILDENAFIL CITRATE [Suspect]
     Indication: PULMONARY ARTERIAL HYPERTENSION
     Dosage: 3 MG DAILY
     Route: 048
     Dates: start: 20090318, end: 20090322
  2. SILDENAFIL CITRATE [Suspect]
     Dosage: 3 MG DAILY
     Route: 048
     Dates: start: 20090324, end: 20090326
  3. LACTOBACILLUS CASEI [Concomitant]
     Indication: CONSTIPATION
     Dosage: UNK
     Route: 048
     Dates: end: 20100505
  4. LASIX [Concomitant]
     Indication: PULMONARY HYPERTENSION
     Dosage: UNK
     Route: 048
     Dates: end: 20100505
  5. SILDENAFIL CITRATE [Suspect]
     Dosage: 9 MG DAILY
     Route: 048
     Dates: start: 20090911, end: 20100505
  6. GASCON [Concomitant]
     Indication: CONSTIPATION
     Dosage: UNK
     Route: 048
     Dates: end: 20100505
  7. PANVITAN [Concomitant]
     Dosage: UNK
     Route: 048
     Dates: end: 20100505
  8. DAI-KENCHU-TO [Concomitant]
     Indication: CONSTIPATION
     Dosage: UNK
     Route: 048
     Dates: end: 20100505
  9. INCREMIN [Concomitant]
     Indication: ANAEMIA
     Dosage: UNK
     Route: 048
     Dates: end: 20100505
  10. SILDENAFIL CITRATE [Suspect]
     Dosage: 6 MG DAILY
     Route: 048
     Dates: start: 20090327, end: 20090419
  11. SILDENAFIL CITRATE [Suspect]
     Dosage: 7 MG DAILY
     Route: 048
     Dates: start: 20090420, end: 20090910
  12. BIOFERMIN R [Concomitant]
     Indication: CONSTIPATION
     Dosage: UNK
     Route: 048
     Dates: end: 20100505
  13. SILDENAFIL CITRATE [Suspect]
     Dosage: 6 MG DAILY
     Route: 048
     Dates: start: 20090323, end: 20090323

REACTIONS (1)
  - MENINGITIS [None]
